FAERS Safety Report 17979133 (Version 1)
Quarter: 2020Q3

REPORT INFORMATION
  Report Type: Report from Study
  Country: US (occurrence: US)
  Receive Date: 20200703
  Receipt Date: 20200703
  Transmission Date: 20201103
  Serious: Yes (Other)
  Sender: FDA-Public Use
  Company Number: US-TEVA-2020-US-1797127

PATIENT
  Sex: Female

DRUGS (12)
  1. OMEPRAZOLE. [Concomitant]
     Active Substance: OMEPRAZOLE
  2. COPAXONE [Suspect]
     Active Substance: GLATIRAMER ACETATE
     Indication: MULTIPLE SCLEROSIS
     Route: 058
     Dates: start: 20180413
  3. PREVACID [Concomitant]
     Active Substance: LANSOPRAZOLE
  4. GABAPENTIN. [Concomitant]
     Active Substance: GABAPENTIN
  5. IBUPROFEN. [Concomitant]
     Active Substance: IBUPROFEN
  6. PRAVASTATIN. [Concomitant]
     Active Substance: PRAVASTATIN
  7. AMANTADINE. [Concomitant]
     Active Substance: AMANTADINE HYDROCHLORIDE
  8. WELLBUTRIN [Concomitant]
     Active Substance: BUPROPION HYDROCHLORIDE
  9. BUPROPN HCL [Concomitant]
     Active Substance: BUPROPION HYDROCHLORIDE
  10. ENABLEX [Concomitant]
     Active Substance: DARIFENACIN HYDROBROMIDE
  11. IBANDRONATE [Concomitant]
     Active Substance: IBANDRONATE SODIUM
  12. YAZ [Concomitant]
     Active Substance: DROSPIRENONE\ETHINYL ESTRADIOL

REACTIONS (3)
  - Fall [Not Recovered/Not Resolved]
  - COVID-19 [Not Recovered/Not Resolved]
  - Fatigue [Not Recovered/Not Resolved]
